FAERS Safety Report 6003825-4 (Version None)
Quarter: 2008Q4

REPORT INFORMATION
  Report Type: 
  Country: None (occurrence: None)
  Receive Date: 20081216
  Receipt Date: 20081208
  Transmission Date: 20090506
  Serious: Yes (Other)
  Sender: FDA-Public Use
  Company Number: US-ROCHE-601744

PATIENT
  Sex: Male
  Weight: 65.8 kg

DRUGS (10)
  1. BONIVA [Suspect]
     Indication: OSTEOPOROSIS
     Dosage: STRENGTH: 3 ML= 150 MG, RECEIVED ON 31/ JUL/ 07, 09/SEP/08, 31/ JUL/08 AND ON 16/OCT/08
     Route: 042
     Dates: start: 20070701, end: 20081101
  2. RAZADYNE [Concomitant]
     Indication: DEMENTIA
     Dosage: FREQUENCY: ONCE
  3. PLAVIX [Concomitant]
     Dosage: STRENGTH: 75 (NO UNIT), FREQUENCY: ONCE, INDICATION: TIA-FALLS
     Dates: start: 20000301
  4. LESCOL XL [Concomitant]
     Indication: HYPERLIPIDAEMIA
     Dosage: STRENGTH: 75 (NO UNIT), FREQUENCY: ONCE, TAKING FROM MANY YEARS
  5. NAMENDA [Concomitant]
     Indication: DEMENTIA
     Dosage: STRENGTH: 10 (NO UNIT)
     Dates: start: 20060101, end: 20081101
  6. PROCARDIA [Concomitant]
     Dosage: STRENGTH: 30 (NO UNITS), DRUG: PROCARDIA XL
  7. NEXIUM [Concomitant]
     Dosage: DRUG: NEXIUM 40
     Dates: start: 20070101
  8. PROSCAR [Concomitant]
     Indication: BENIGN PROSTATIC HYPERPLASIA
     Dates: start: 20040101
  9. CLARINEX [Concomitant]
     Dosage: STRENGTH: 24 (NO UNIT), TAKEN PERIODICALLY
     Dates: start: 20000101
  10. TOPROL-XL [Concomitant]
     Dosage: DRUG: TOPROL XL
     Dates: start: 20060101

REACTIONS (2)
  - ATRIAL FLUTTER [None]
  - SYNCOPE [None]
